FAERS Safety Report 25958119 (Version 1)
Quarter: 2025Q4

REPORT INFORMATION
  Report Type: Spontaneous
  Country: EU (occurrence: EU)
  Receive Date: 20251024
  Receipt Date: 20251024
  Transmission Date: 20260118
  Serious: Yes (Death, Other)
  Sender: MYLAN
  Company Number: EU-ADIENNEP-2024AD000045

PATIENT
  Sex: Male

DRUGS (52)
  1. MYCOPHENOLATE MOFETIL [Suspect]
     Active Substance: MYCOPHENOLATE MOFETIL
     Indication: Prophylaxis against graft versus host disease
     Dosage: UNK
  2. MYCOPHENOLATE MOFETIL [Suspect]
     Active Substance: MYCOPHENOLATE MOFETIL
     Indication: Graft versus host disease
     Dosage: UNK
     Route: 065
  3. MYCOPHENOLATE MOFETIL [Suspect]
     Active Substance: MYCOPHENOLATE MOFETIL
     Dosage: UNK
     Route: 065
  4. MYCOPHENOLATE MOFETIL [Suspect]
     Active Substance: MYCOPHENOLATE MOFETIL
     Dosage: UNK
  5. FLUDARABINE [Suspect]
     Active Substance: FLUDARABINE PHOSPHATE
     Indication: Allogenic stem cell transplantation
     Dosage: UNK
  6. FLUDARABINE [Suspect]
     Active Substance: FLUDARABINE PHOSPHATE
     Indication: Bone marrow conditioning regimen
     Dosage: UNK
     Route: 065
  7. FLUDARABINE [Suspect]
     Active Substance: FLUDARABINE PHOSPHATE
     Dosage: UNK
     Route: 065
  8. FLUDARABINE [Suspect]
     Active Substance: FLUDARABINE PHOSPHATE
     Dosage: UNK
  9. THIOTEPA [Suspect]
     Active Substance: THIOTEPA
     Indication: Allogenic stem cell transplantation
     Dosage: UNK
  10. THIOTEPA [Suspect]
     Active Substance: THIOTEPA
     Indication: Bone marrow conditioning regimen
     Dosage: UNK
     Route: 065
  11. THIOTEPA [Suspect]
     Active Substance: THIOTEPA
     Dosage: UNK
     Route: 065
  12. THIOTEPA [Suspect]
     Active Substance: THIOTEPA
     Dosage: UNK
  13. CYCLOPHOSPHAMIDE [Suspect]
     Active Substance: CYCLOPHOSPHAMIDE
     Indication: Prophylaxis against graft versus host disease
     Dosage: UNK
  14. CYCLOPHOSPHAMIDE [Suspect]
     Active Substance: CYCLOPHOSPHAMIDE
     Dosage: UNK
     Route: 065
  15. CYCLOPHOSPHAMIDE [Suspect]
     Active Substance: CYCLOPHOSPHAMIDE
     Dosage: UNK
     Route: 065
  16. CYCLOPHOSPHAMIDE [Suspect]
     Active Substance: CYCLOPHOSPHAMIDE
     Dosage: UNK
  17. CYCLOSPORINE [Suspect]
     Active Substance: CYCLOSPORINE
     Indication: Prophylaxis against graft versus host disease
     Dosage: UNK
  18. CYCLOSPORINE [Suspect]
     Active Substance: CYCLOSPORINE
     Indication: Graft versus host disease
     Dosage: UNK
     Route: 065
  19. CYCLOSPORINE [Suspect]
     Active Substance: CYCLOSPORINE
     Dosage: UNK
     Route: 065
  20. CYCLOSPORINE [Suspect]
     Active Substance: CYCLOSPORINE
     Dosage: UNK
  21. BUSULFAN [Suspect]
     Active Substance: BUSULFAN
     Indication: Allogenic stem cell transplantation
     Dosage: UNK
  22. BUSULFAN [Suspect]
     Active Substance: BUSULFAN
     Dosage: UNK
     Route: 065
  23. BUSULFAN [Suspect]
     Active Substance: BUSULFAN
     Dosage: UNK
     Route: 065
  24. BUSULFAN [Suspect]
     Active Substance: BUSULFAN
     Dosage: UNK
  25. DAPTOMYCIN [Concomitant]
     Active Substance: DAPTOMYCIN
     Indication: Pseudomonas infection
     Dosage: 700 MILLIGRAM
     Dates: start: 20130612, end: 20130614
  26. DAPTOMYCIN [Concomitant]
     Active Substance: DAPTOMYCIN
     Dosage: 700 MILLIGRAM
     Route: 065
     Dates: start: 20130612, end: 20130614
  27. DAPTOMYCIN [Concomitant]
     Active Substance: DAPTOMYCIN
     Dosage: 700 MILLIGRAM
     Route: 065
     Dates: start: 20130612, end: 20130614
  28. DAPTOMYCIN [Concomitant]
     Active Substance: DAPTOMYCIN
     Dosage: 700 MILLIGRAM
     Dates: start: 20130612, end: 20130614
  29. RIFAMPIN [Concomitant]
     Active Substance: RIFAMPIN
     Indication: Pseudomonas infection
     Dosage: 600 MILLIGRAM
     Dates: start: 20130612, end: 20130614
  30. RIFAMPIN [Concomitant]
     Active Substance: RIFAMPIN
     Dosage: 600 MILLIGRAM
     Route: 065
     Dates: start: 20130612, end: 20130614
  31. RIFAMPIN [Concomitant]
     Active Substance: RIFAMPIN
     Dosage: 600 MILLIGRAM
     Route: 065
     Dates: start: 20130612, end: 20130614
  32. RIFAMPIN [Concomitant]
     Active Substance: RIFAMPIN
     Dosage: 600 MILLIGRAM
     Dates: start: 20130612, end: 20130614
  33. TIGECYCLINE [Concomitant]
     Active Substance: TIGECYCLINE
     Indication: Pseudomonas infection
     Dosage: 200 MILLIGRAM
     Dates: start: 20130612, end: 20130614
  34. TIGECYCLINE [Concomitant]
     Active Substance: TIGECYCLINE
     Dosage: 200 MILLIGRAM
     Route: 065
     Dates: start: 20130612, end: 20130614
  35. TIGECYCLINE [Concomitant]
     Active Substance: TIGECYCLINE
     Dosage: 200 MILLIGRAM
     Route: 065
     Dates: start: 20130612, end: 20130614
  36. TIGECYCLINE [Concomitant]
     Active Substance: TIGECYCLINE
     Dosage: 200 MILLIGRAM
     Dates: start: 20130612, end: 20130614
  37. COLISTIMETHATE SODIUM [Concomitant]
     Active Substance: COLISTIMETHATE SODIUM
     Indication: Klebsiella infection
     Dosage: 9 MEGA-INTERNATIONAL UNIT
     Dates: start: 20130607, end: 20130614
  38. COLISTIMETHATE SODIUM [Concomitant]
     Active Substance: COLISTIMETHATE SODIUM
     Dosage: 9 MEGA-INTERNATIONAL UNIT
     Route: 065
     Dates: start: 20130607, end: 20130614
  39. COLISTIMETHATE SODIUM [Concomitant]
     Active Substance: COLISTIMETHATE SODIUM
     Dosage: 9 MEGA-INTERNATIONAL UNIT
     Route: 065
     Dates: start: 20130607, end: 20130614
  40. COLISTIMETHATE SODIUM [Concomitant]
     Active Substance: COLISTIMETHATE SODIUM
     Dosage: 9 MEGA-INTERNATIONAL UNIT
     Dates: start: 20130607, end: 20130614
  41. MEROPENEM [Concomitant]
     Active Substance: MEROPENEM
     Indication: Febrile neutropenia
     Dosage: UNK
  42. MEROPENEM [Concomitant]
     Active Substance: MEROPENEM
     Dosage: UNK
     Route: 065
  43. MEROPENEM [Concomitant]
     Active Substance: MEROPENEM
     Dosage: UNK
     Route: 065
  44. MEROPENEM [Concomitant]
     Active Substance: MEROPENEM
     Dosage: UNK
  45. AMIKACIN SULFATE [Concomitant]
     Active Substance: AMIKACIN SULFATE
     Indication: Febrile neutropenia
     Dosage: UNK
     Dates: start: 20130530, end: 20130614
  46. AMIKACIN SULFATE [Concomitant]
     Active Substance: AMIKACIN SULFATE
     Dosage: UNK
     Route: 065
     Dates: start: 20130530, end: 20130614
  47. AMIKACIN SULFATE [Concomitant]
     Active Substance: AMIKACIN SULFATE
     Dosage: UNK
     Route: 065
     Dates: start: 20130530, end: 20130614
  48. AMIKACIN SULFATE [Concomitant]
     Active Substance: AMIKACIN SULFATE
     Dosage: UNK
     Dates: start: 20130530, end: 20130614
  49. PIPERACILLIN SODIUM\TAZOBACTAM SODIUM [Concomitant]
     Active Substance: PIPERACILLIN SODIUM\TAZOBACTAM SODIUM
     Indication: Febrile neutropenia
     Dosage: UNK
  50. PIPERACILLIN SODIUM\TAZOBACTAM SODIUM [Concomitant]
     Active Substance: PIPERACILLIN SODIUM\TAZOBACTAM SODIUM
     Dosage: UNK
     Route: 065
  51. PIPERACILLIN SODIUM\TAZOBACTAM SODIUM [Concomitant]
     Active Substance: PIPERACILLIN SODIUM\TAZOBACTAM SODIUM
     Dosage: UNK
     Route: 065
  52. PIPERACILLIN SODIUM\TAZOBACTAM SODIUM [Concomitant]
     Active Substance: PIPERACILLIN SODIUM\TAZOBACTAM SODIUM
     Dosage: UNK

REACTIONS (11)
  - Septic shock [Fatal]
  - Febrile neutropenia [Fatal]
  - Bone marrow failure [Fatal]
  - Anal abscess [Fatal]
  - Pseudomonal sepsis [Fatal]
  - Klebsiella infection [Fatal]
  - Enterococcal infection [Unknown]
  - Pyrexia [Unknown]
  - Bacterial infection [Unknown]
  - Neutropenia [Unknown]
  - Pseudomonas infection [Unknown]
